FAERS Safety Report 7005165-3 (Version None)
Quarter: 2010Q3

REPORT INFORMATION
  Report Type: 
  Country: None (occurrence: None)
  Receive Date: 20100917
  Receipt Date: 20100902
  Transmission Date: 20110219
  Serious: Yes (Life-Threatening, Hospitalization)
  Sender: FDA-Public Use
  Company Number: DSA_33101_2009

PATIENT
  Age: 80 Year
  Sex: Female

DRUGS (15)
  1. ENALAPRIL MALEATE [Suspect]
     Indication: HYPERTENSION
     Dosage: 10 MG BID ORAL
     Route: 048
  2. LANTUS [Suspect]
     Indication: TYPE 2 DIABETES MELLITUS
     Dosage: 36 IU, SUBCUTANEOUS, 26 IU
     Route: 058
     Dates: start: 20080219, end: 20100316
  3. LANTUS [Suspect]
     Indication: TYPE 2 DIABETES MELLITUS
     Dosage: 36 IU, SUBCUTANEOUS, 26 IU
     Route: 058
     Dates: start: 20100317
  4. ACTRAPID /00030501/ (ACTRAPID PENFILL INSULIN, NEUTRAL) (NOT SPECIFIED [Suspect]
     Indication: TYPE 2 DIABETES MELLITUS
     Dosage: 30-18-16 IU, 16-8-10 IU
     Dates: start: 20080201, end: 20080316
  5. ACTRAPID /00030501/ (ACTRAPID PENFILL INSULIN, NEUTRAL) (NOT SPECIFIED [Suspect]
     Indication: TYPE 2 DIABETES MELLITUS
     Dosage: 30-18-16 IU, 16-8-10 IU
     Dates: start: 20080317
  6. ALBUTEROL [Concomitant]
  7. ASPIRIN [Concomitant]
  8. CALCIMAGON-D3 [Concomitant]
  9. CARVEDILOL [Concomitant]
  10. PARACODIN BITARTRATE TAB [Concomitant]
  11. LEVOTHYROXINE SODIUM [Concomitant]
  12. OMEPRAZOLE [Concomitant]
  13. PREDNISOLON [Concomitant]
  14. RISPERIDONE [Concomitant]
  15. TORSEMIDE [Concomitant]

REACTIONS (11)
  - BLOOD CREATININE INCREASED [None]
  - BLOOD GLUCOSE INCREASED [None]
  - C-REACTIVE PROTEIN INCREASED [None]
  - DRUG INTERACTION [None]
  - GENERAL PHYSICAL HEALTH DETERIORATION [None]
  - GLYCOSYLATED HAEMOGLOBIN INCREASED [None]
  - HAEMATOCRIT DECREASED [None]
  - HAEMOGLOBIN DECREASED [None]
  - HYPOGLYCAEMIA [None]
  - SOMNOLENCE [None]
  - UNRESPONSIVE TO STIMULI [None]
